FAERS Safety Report 20604973 (Version 1)
Quarter: 2022Q1

REPORT INFORMATION
  Report Type: Other
  Country: CA (occurrence: CA)
  Receive Date: 20220317
  Receipt Date: 20220317
  Transmission Date: 20220423
  Serious: Yes (Other)
  Sender: FDA-Public Use
  Company Number: CA-CELLTRION INC.-2022CA002905

PATIENT

DRUGS (17)
  1. RITUXIMAB [Suspect]
     Active Substance: RITUXIMAB
     Indication: Polymyalgia rheumatica
     Dosage: 1000 MILLIGRAM
     Route: 042
  2. RITUXIMAB [Suspect]
     Active Substance: RITUXIMAB
     Indication: Giant cell arteritis
     Dosage: 1000 MILLIGRAM
     Route: 042
  3. ALENDRONATE SODIUM [Concomitant]
     Active Substance: ALENDRONATE SODIUM
  4. TRAMADOL [Concomitant]
     Active Substance: TRAMADOL
  5. FLUTICASONE FUROATE [Concomitant]
     Active Substance: FLUTICASONE FUROATE
  6. BISOPROLOL [Concomitant]
     Active Substance: BISOPROLOL
  7. CALCIUM [Concomitant]
     Active Substance: CALCIUM
  8. DOCUSATE [Concomitant]
     Active Substance: DOCUSATE
  9. ELIQUIS [Concomitant]
     Active Substance: APIXABAN
  10. FOLIC ACID [Concomitant]
     Active Substance: FOLIC ACID
  11. HYDROMORPHONE [Concomitant]
     Active Substance: HYDROMORPHONE
  12. POLYETHYLENE GLYCOL 400\PROPYLENE GLYCOL [Concomitant]
     Active Substance: POLYETHYLENE GLYCOL 400\PROPYLENE GLYCOL
  13. METHOTREXATE [Concomitant]
     Active Substance: METHOTREXATE
     Dosage: 1 DOSAGE FORMS
  14. PANTOPRAZOLE [Concomitant]
     Active Substance: PANTOPRAZOLE
  15. PREGABALIN [Concomitant]
     Active Substance: PREGABALIN
     Dosage: 1 DOSAGE FORMS
  16. RIVACOCET [Concomitant]
  17. ZOPICLONE [Concomitant]
     Active Substance: ZOPICLONE

REACTIONS (5)
  - Pericardial effusion [Not Recovered/Not Resolved]
  - COVID-19 [Not Recovered/Not Resolved]
  - Dyspnoea [Not Recovered/Not Resolved]
  - Off label use [Not Recovered/Not Resolved]
  - Off label use [Unknown]
